FAERS Safety Report 6648232-6 (Version None)
Quarter: 2010Q1

REPORT INFORMATION
  Report Type: 
  Country: None (occurrence: None)
  Receive Date: 20100318
  Receipt Date: 20100305
  Transmission Date: 20100710
  Serious: Yes (Hospitalization)
  Sender: FDA-Public Use
  Company Number: 8047556

PATIENT
  Sex: Female
  Weight: 47.5 kg

DRUGS (5)
  1. CERTOLIZUMAB PEGOL     (CERTOLIZUMAB PEGOL) [Suspect]
     Indication: RHEUMATOID ARTHRITIS
     Dosage: (1 DOSAGE PER WEEK SUBCUTANEOUS)
     Route: 058
     Dates: start: 20090512, end: 20090611
  2. METHOTREXATE [Suspect]
     Indication: RHEUMATOID ARTHRITIS
     Dosage: (8 MG 1X/WEEK ORAL)
     Route: 048
     Dates: start: 20090401
  3. FOLIC ACID [Concomitant]
  4. LOXOPROFEN SODIUM [Concomitant]
  5. ISONIAZID [Concomitant]

REACTIONS (2)
  - CHEST X-RAY ABNORMAL [None]
  - DRUG INEFFECTIVE [None]
